FAERS Safety Report 11380284 (Version 1)
Quarter: 2015Q3

REPORT INFORMATION
  Report Type: Spontaneous
  Country: US (occurrence: US)
  Receive Date: 20150814
  Receipt Date: 20150814
  Transmission Date: 20151125
  Serious: Yes (Other)
  Sender: FDA-Public Use
  Company Number: US-JNJFOC-20150603437

PATIENT
  Age: 44 Year
  Sex: Female

DRUGS (2)
  1. INFLIXIMAB, RECOMBINANT [Suspect]
     Active Substance: INFLIXIMAB
     Indication: CROHN^S DISEASE
     Route: 042
  2. 6- MERCAPTOPURINE [Concomitant]
     Active Substance: MERCAPTOPURINE ANHYDROUS
     Indication: CROHN^S DISEASE
     Route: 065

REACTIONS (1)
  - Sarcoidosis [Recovering/Resolving]
